FAERS Safety Report 26064285 (Version 1)
Quarter: 2025Q4

REPORT INFORMATION
  Report Type: Spontaneous
  Country: EU (occurrence: EU)
  Receive Date: 20251119
  Receipt Date: 20251119
  Transmission Date: 20260117
  Serious: Yes (Other)
  Sender: MYLAN
  Company Number: None

PATIENT
  Age: 41 Year
  Sex: Male

DRUGS (8)
  1. LYRICA [Suspect]
     Active Substance: PREGABALIN
     Indication: Back pain
     Dosage: 25 MILLIGRAM, BID (BREAKFAST-DINNER, HARD-CAPSULES, 56 CAPSULES)
     Dates: start: 20251008
  2. LYRICA [Suspect]
     Active Substance: PREGABALIN
     Dosage: 25 MILLIGRAM, BID (BREAKFAST-DINNER, HARD-CAPSULES, 56 CAPSULES)
     Route: 048
     Dates: start: 20251008
  3. LYRICA [Suspect]
     Active Substance: PREGABALIN
     Dosage: 25 MILLIGRAM, BID (BREAKFAST-DINNER, HARD-CAPSULES, 56 CAPSULES)
     Route: 048
     Dates: start: 20251008
  4. LYRICA [Suspect]
     Active Substance: PREGABALIN
     Dosage: 25 MILLIGRAM, BID (BREAKFAST-DINNER, HARD-CAPSULES, 56 CAPSULES)
     Dates: start: 20251008
  5. GABAPENTIN [Concomitant]
     Active Substance: GABAPENTIN
     Indication: Back pain
     Dosage: 300 MILLIGRAM, BID (BREAKFAST-DINNER), GENERIC PHARMACEUTICAL EQUIVALENT, 30 CAPSULES
     Dates: start: 20251008
  6. GABAPENTIN [Concomitant]
     Active Substance: GABAPENTIN
     Dosage: 300 MILLIGRAM, BID (BREAKFAST-DINNER), GENERIC PHARMACEUTICAL EQUIVALENT, 30 CAPSULES
     Route: 048
     Dates: start: 20251008
  7. GABAPENTIN [Concomitant]
     Active Substance: GABAPENTIN
     Dosage: 300 MILLIGRAM, BID (BREAKFAST-DINNER), GENERIC PHARMACEUTICAL EQUIVALENT, 30 CAPSULES
     Route: 048
     Dates: start: 20251008
  8. GABAPENTIN [Concomitant]
     Active Substance: GABAPENTIN
     Dosage: 300 MILLIGRAM, BID (BREAKFAST-DINNER), GENERIC PHARMACEUTICAL EQUIVALENT, 30 CAPSULES
     Dates: start: 20251008

REACTIONS (2)
  - Nervousness [Recovered/Resolved]
  - Insomnia [Recovered/Resolved]

NARRATIVE: CASE EVENT DATE: 20251008
